FAERS Safety Report 5049808-2 (Version None)
Quarter: 2006Q3

REPORT INFORMATION
  Report Type: 
  Country: None (occurrence: None)
  Receive Date: 20060707
  Receipt Date: 20060628
  Transmission Date: 20061208
  Serious: Yes (Death, Congenital Anomaly)
  Sender: FDA-Public Use
  Company Number: 2006-BP-07474BP

PATIENT
  Sex: Female
  Weight: 1.36 kg

DRUGS (3)
  1. VIRAMUNE [Suspect]
     Dosage: 400 MG (NR), IU
  2. TRUVADA [Suspect]
     Dosage: SEE TEXT (NR,200MG/300MG), IU
  3. ZIDOVUDINE [Suspect]
     Dosage: SEE TEXT (NR,2MG/KG X 1 HOUR), IV
     Route: 042
     Dates: start: 20060506, end: 20060506

REACTIONS (4)
  - DRUG EXPOSURE DURING PREGNANCY [None]
  - HYDROPS FOETALIS [None]
  - MULTIPLE CONGENITAL ABNORMALITIES [None]
  - PREMATURE BABY [None]
